FAERS Safety Report 18753620 (Version 2)
Quarter: 2021Q1

REPORT INFORMATION
  Report Type: Report from Study
  Country: US (occurrence: US)
  Receive Date: 20210118
  Receipt Date: 20210305
  Transmission Date: 20210419
  Serious: Yes (Other)
  Sender: FDA-Public Use
  Company Number: US-AMGEN-USASP2021005098

PATIENT
  Age: 47 Year
  Sex: Female

DRUGS (3)
  1. HUMIRA [Concomitant]
     Active Substance: ADALIMUMAB
     Indication: PSORIATIC ARTHROPATHY
     Dosage: UNK (CITRATE FREE)
     Route: 058
  2. HUMIRA [Concomitant]
     Active Substance: ADALIMUMAB
     Indication: PSORIASIS
  3. OTEZLA [Suspect]
     Active Substance: APREMILAST
     Indication: PSORIASIS
     Dosage: 30 MILLIGRAM, BID
     Route: 065

REACTIONS (12)
  - Post procedural infection [Recovered/Resolved]
  - Diarrhoea [Unknown]
  - Surgery [Recovered/Resolved]
  - Cough [Recovering/Resolving]
  - Nausea [Unknown]
  - Cyst [Recovered/Resolved]
  - Infection [Recovered/Resolved]
  - Abdominal operation [Recovering/Resolving]
  - Salpingo-oophorectomy [Recovered/Resolved]
  - Endotracheal intubation [Recovering/Resolving]
  - Dermatitis allergic [Recovered/Resolved]
  - Pain in extremity [Not Recovered/Not Resolved]

NARRATIVE: CASE EVENT DATE: 202012
